FAERS Safety Report 23082613 (Version 4)
Quarter: 2024Q4

REPORT INFORMATION
  Report Type: Report from Study
  Country: ES (occurrence: ES)
  Receive Date: 20231019
  Receipt Date: 20241023
  Transmission Date: 20250115
  Serious: Yes (Hospitalization)
  Sender: ABBVIE
  Company Number: ES-ABBVIE-5434691

PATIENT
  Sex: Male
  Weight: 99 kg

DRUGS (4)
  1. CARBIDOPA\LEVODOPA [Suspect]
     Active Substance: CARBIDOPA\LEVODOPA
     Indication: Parkinson^s disease
     Route: 050
     Dates: start: 20190328
  2. CARBIDOPA\LEVODOPA [Suspect]
     Active Substance: CARBIDOPA\LEVODOPA
     Dosage: CONTINUOUS DOSE REDUCTION BY 0.3 ML/H
     Route: 050
     Dates: end: 2023
  3. CARBIDOPA\LEVODOPA [Suspect]
     Active Substance: CARBIDOPA\LEVODOPA
     Dosage: DOSE INCREASED
     Route: 050
     Dates: start: 20231018
  4. CARBIDOPA\LEVODOPA [Suspect]
     Active Substance: CARBIDOPA\LEVODOPA
     Dosage: INCREASE IN THE CONTINUOUS DOSE
     Route: 050
     Dates: start: 2023, end: 2023

REACTIONS (12)
  - Pain [Recovered/Resolved]
  - Behaviour disorder [Unknown]
  - Cholelithiasis [Unknown]
  - Locomotive syndrome [Unknown]
  - Device dislocation [Unknown]
  - Abnormal behaviour [Recovered/Resolved]
  - Device connection issue [Unknown]
  - Device issue [Unknown]
  - Device placement issue [Unknown]
  - Unevaluable event [Unknown]
  - Anger [Not Recovered/Not Resolved]
  - Irritability [Unknown]

NARRATIVE: CASE EVENT DATE: 20230101
